FAERS Safety Report 14786575 (Version 1)
Quarter: 2018Q2

REPORT INFORMATION
  Report Type: Spontaneous
  Country: US (occurrence: US)
  Receive Date: 20180420
  Receipt Date: 20180420
  Transmission Date: 20180711
  Serious: Yes (Hospitalization)
  Sender: FDA-Public Use
  Company Number: US-BAUSCH-BL-2018-010826

PATIENT
  Age: 18 Year
  Sex: Female

DRUGS (1)
  1. BUPROPION. [Suspect]
     Active Substance: BUPROPION
     Indication: PRODUCT USED FOR UNKNOWN INDICATION
     Route: 048

REACTIONS (7)
  - Lethargy [Unknown]
  - Cardiotoxicity [Unknown]
  - Overdose [Unknown]
  - Coma [Unknown]
  - Brain stem syndrome [Unknown]
  - Somnolence [Unknown]
  - Status epilepticus [Unknown]
